FAERS Safety Report 8693282 (Version 4)
Quarter: 2013Q1

REPORT INFORMATION
  Report Type: Spontaneous
  Country: US (occurrence: US)
  Receive Date: 20120730
  Receipt Date: 20130218
  Transmission Date: 20140127
  Serious: Yes (Other)
  Sender: FDA-Public Use
  Company Number: US-GILEAD-2012-0058812

PATIENT
  Sex: Male

DRUGS (4)
  1. COMPLERA [Suspect]
     Indication: HIV INFECTION
  2. FLONASE [Concomitant]
  3. VALACYCLOVIR HYDROCHLORIDE [Concomitant]
  4. ATRIPLA [Concomitant]
     Indication: HIV INFECTION

REACTIONS (1)
  - Rhabdomyolysis [Recovered/Resolved]
